FAERS Safety Report 18314010 (Version 4)
Quarter: 2020Q4

REPORT INFORMATION
  Report Type: Report from Study
  Country: CA (occurrence: CA)
  Receive Date: 20200925
  Receipt Date: 20201027
  Transmission Date: 20210113
  Serious: Yes (Hospitalization, Other)
  Sender: FDA-Public Use
  Company Number: CA-JNJFOC-20200928606

PATIENT
  Age: 14 Year
  Sex: Male
  Weight: 72 kg

DRUGS (2)
  1. URSODIOL. [Concomitant]
     Active Substance: URSODIOL
     Indication: PRODUCT USED FOR UNKNOWN INDICATION
     Route: 065
     Dates: start: 20200811
  2. REMICADE [Suspect]
     Active Substance: INFLIXIMAB
     Indication: CROHN^S DISEASE
     Dosage: RECEIVED INFUSION ON 13-MAR-2020 AND LAST INFUSION WAS ON 28/JUL/2020. DOSE 5 MG/KG
     Route: 042
     Dates: start: 20200220, end: 20200926

REACTIONS (5)
  - Product use issue [Unknown]
  - Drug ineffective [Unknown]
  - Hepatitis [Recovering/Resolving]
  - Abscess [Recovering/Resolving]
  - Off label use [Unknown]

NARRATIVE: CASE EVENT DATE: 2020
